FAERS Safety Report 15147275 (Version 1)
Quarter: 2018Q3

REPORT INFORMATION
  Report Type: Spontaneous
  Country: JP (occurrence: JP)
  Receive Date: 20180716
  Receipt Date: 20180716
  Transmission Date: 20181010
  Serious: Yes (Life-Threatening, Hospitalization, Other)
  Sender: FDA-Public Use
  Company Number: JP-ROCHE-2131487

PATIENT
  Age: 38 Year
  Sex: Female
  Weight: 60 kg

DRUGS (13)
  1. DAIPHEN [Concomitant]
     Active Substance: SULFAMETHOXAZOLE\TRIMETHOPRIM
     Dosage: DOSAGE IS UNCERTAIN.
     Route: 065
  2. LOXOPROFEN [Concomitant]
     Active Substance: LOXOPROFEN
     Dosage: DOSAGE IS UNCERTAIN.
     Route: 065
  3. MONTELUKAST [Concomitant]
     Active Substance: MONTELUKAST SODIUM
     Dosage: DOSAGE IS UNCERTAIN.
     Route: 065
  4. RECALBON (JAPAN) [Concomitant]
     Active Substance: MINODRONIC ACID
     Dosage: DOSAGE IS UNCERTAIN.
     Route: 065
  5. TRAZODONE HYDROCHLORIDE. [Concomitant]
     Active Substance: TRAZODONE HYDROCHLORIDE
     Dosage: DOSAGE IS UNCERTAIN.
     Route: 065
  6. CARVEDILOL. [Concomitant]
     Active Substance: CARVEDILOL
     Dosage: DOSAGE IS UNCERTAIN.
     Route: 065
  7. FAMOTIDINE D [Concomitant]
     Active Substance: FAMOTIDINE
     Dosage: DOSAGE IS UNCERTAIN.
     Route: 065
  8. ATORVASTATIN [Concomitant]
     Active Substance: ATORVASTATIN
     Dosage: DOSAGE IS UNCERTAIN.
     Route: 065
  9. MOSAPRIDE CITRATE [Concomitant]
     Active Substance: MOSAPRIDE CITRATE
     Dosage: DOSAGE IS UNCERTAIN.?REPORTED AS MOSAPRIDE CITRATE HYDRATE.
     Route: 065
  10. ACTEMRA [Suspect]
     Active Substance: TOCILIZUMAB
     Indication: TAKAYASU^S ARTERITIS
     Dosage: SELF?ADMINISTRATION?MOST RECENT DOSE ON 03/APR/2018.
     Route: 058
     Dates: start: 20171107
  11. BAYASPIRIN [Concomitant]
     Active Substance: ASPIRIN
     Dosage: DOSAGE IS UNCERTAIN.
     Route: 065
  12. XYZAL [Concomitant]
     Active Substance: LEVOCETIRIZINE DIHYDROCHLORIDE
     Dosage: DOSAGE IS UNCERTAIN.
     Route: 065
  13. PREDNISOLONE. [Concomitant]
     Active Substance: PREDNISOLONE
     Route: 048
     Dates: start: 2004

REACTIONS (3)
  - Diverticulitis [Unknown]
  - Large intestine perforation [Recovered/Resolved with Sequelae]
  - Enterocolitis [Unknown]

NARRATIVE: CASE EVENT DATE: 20180406
